FAERS Safety Report 6438191-3 (Version None)
Quarter: 2009Q4

REPORT INFORMATION
  Report Type: 
  Country: None (occurrence: None)
  Receive Date: 20091112
  Receipt Date: 20091103
  Transmission Date: 20100525
  Serious: Yes (Other)
  Sender: FDA-Public Use
  Company Number: US-CELGENEUS-163-21880-09110280

PATIENT
  Sex: Female

DRUGS (1)
  1. REVLIMID [Suspect]
     Indication: MULTIPLE MYELOMA
     Route: 048
     Dates: start: 20090701

REACTIONS (26)
  - ABDOMINAL PAIN UPPER [None]
  - BREAST PAIN [None]
  - COUGH [None]
  - DIZZINESS [None]
  - DRY MOUTH [None]
  - DRY SKIN [None]
  - DYSPHONIA [None]
  - DYSPNOEA [None]
  - FATIGUE [None]
  - GASTROOESOPHAGEAL REFLUX DISEASE [None]
  - HEADACHE [None]
  - HORMONE LEVEL ABNORMAL [None]
  - HYPERHIDROSIS [None]
  - HYPOAESTHESIA [None]
  - INCREASED TENDENCY TO BRUISE [None]
  - INFLAMMATION [None]
  - INSOMNIA [None]
  - MUSCULAR WEAKNESS [None]
  - NASAL CONGESTION [None]
  - NEUROPATHY PERIPHERAL [None]
  - OROPHARYNGEAL PAIN [None]
  - PAIN [None]
  - SINUS DISORDER [None]
  - SWELLING [None]
  - VEIN DISORDER [None]
  - WEIGHT INCREASED [None]
